FAERS Safety Report 23775734 (Version 1)
Quarter: 2024Q2

REPORT INFORMATION
  Report Type: Spontaneous
  Country: US (occurrence: US)
  Receive Date: 20240423
  Receipt Date: 20240423
  Transmission Date: 20240716
  Serious: No
  Sender: FDA-Public Use
  Company Number: US-TEVA-VS-3180665

PATIENT
  Sex: Female

DRUGS (1)
  1. UZEDY [Suspect]
     Active Substance: RISPERIDONE
     Indication: Schizoaffective disorder
     Dosage: STRENGTH: 150MG/0.42ML
     Route: 065
     Dates: start: 20231102, end: 20240222

REACTIONS (3)
  - Irritability [Unknown]
  - Drug ineffective [Unknown]
  - Depression [Unknown]
